FAERS Safety Report 13332818 (Version 3)
Quarter: 2018Q2

REPORT INFORMATION
  Report Type: Spontaneous
  Country: US (occurrence: US)
  Receive Date: 20170314
  Receipt Date: 20180423
  Transmission Date: 20180711
  Serious: No
  Sender: FDA-Public Use
  Company Number: US-PFIZER INC-2017106702

PATIENT
  Age: 62 Year
  Sex: Male
  Weight: 85.71 kg

DRUGS (2)
  1. LYRICA [Suspect]
     Active Substance: PREGABALIN
     Indication: BURNING SENSATION
     Dosage: 100 MG, 3X/DAY (ONE CAPSULE)
  2. LYRICA [Suspect]
     Active Substance: PREGABALIN
     Indication: PAIN
     Dosage: UNK

REACTIONS (3)
  - Burning sensation [Not Recovered/Not Resolved]
  - Feeling of body temperature change [Unknown]
  - Condition aggravated [Not Recovered/Not Resolved]
